FAERS Safety Report 4584126-8 (Version None)
Quarter: 2005Q1

REPORT INFORMATION
  Report Type: 
  Country: None (occurrence: None)
  Receive Date: 20050211
  Receipt Date: 20050131
  Transmission Date: 20050727
  Serious: Yes (Hospitalization)
  Sender: FDA-Public Use
  Company Number: 2005-124999-NL

PATIENT
  Age: 61 Year
  Sex: Female

DRUGS (4)
  1. MIRTAZAPINE [Suspect]
     Dosage: 30 MG QD , ORAL
     Route: 048
  2. LITHIUM [Suspect]
     Dosage: 800 MG QD ; ORAL
     Route: 048
  3. FLUPENTIXOL [Concomitant]
  4. OLANZAPINE [Concomitant]

REACTIONS (2)
  - DRUG LEVEL INCREASED [None]
  - THERAPEUTIC AGENT TOXICITY [None]
